FAERS Safety Report 22208934 (Version 2)
Quarter: 2023Q4

REPORT INFORMATION
  Report Type: Spontaneous
  Country: US (occurrence: US)
  Receive Date: 20230413
  Receipt Date: 20231227
  Transmission Date: 20240110
  Serious: No
  Sender: FDA-Public Use
  Company Number: US-PFIZER INC-PV202300027940

PATIENT
  Age: 82 Year
  Sex: Female

DRUGS (7)
  1. IBRANCE [Suspect]
     Active Substance: PALBOCICLIB
     Indication: Breast cancer metastatic
     Dosage: TOOK MY 3 WEEKS AND NOW I AM OFF THIS WEEK, WITH WATER
     Route: 048
     Dates: start: 202101
  2. SIMVASTATIN [Concomitant]
     Active Substance: SIMVASTATIN
     Dosage: ONCE A DAY, WITH WATER
     Route: 048
  3. METOPROLOL [Concomitant]
     Active Substance: METOPROLOL
     Dosage: ONCE A DAY, WITH WATER
     Route: 048
  4. SPIRONOLACTONE [Concomitant]
     Active Substance: SPIRONOLACTONE
     Dosage: ONCE A DAY, WITH WATER
     Route: 048
  5. PANTOPRAZOLE [Concomitant]
     Active Substance: PANTOPRAZOLE
     Indication: Ulcer
     Dosage: ONCE A DAY, WITH WATER
     Route: 048
  6. XGEVA [Concomitant]
     Active Substance: DENOSUMAB
     Dosage: 1 DF, MONTHLY
  7. FASLODEX [Concomitant]
     Active Substance: FULVESTRANT
     Dosage: 500 MG, MONTHLY

REACTIONS (1)
  - Fatigue [Unknown]
